FAERS Safety Report 9779497 (Version 2)
Quarter: 2014Q1

REPORT INFORMATION
  Report Type: Spontaneous
  Country: US (occurrence: US)
  Receive Date: 20131223
  Receipt Date: 20140122
  Transmission Date: 20141002
  Serious: Yes (Other)
  Sender: FDA-Public Use
  Company Number: US-SHIONOGI, INC-2013000407

PATIENT
  Age: 49 Year
  Sex: Female
  Weight: 58.96 kg

DRUGS (3)
  1. OSPHENA [Suspect]
     Indication: DYSPAREUNIA
     Dosage: 60 MG QD IN THE EVENING
     Route: 048
     Dates: start: 20131021, end: 20131207
  2. OSPHENA [Suspect]
     Indication: VULVOVAGINAL DRYNESS
  3. ESTRACE [Suspect]
     Indication: PRODUCT USED FOR UNKNOWN INDICATION
     Dosage: 0.01 % 1 TO 2 GMS TWICE WEEKLY
     Route: 067
     Dates: end: 20131207

REACTIONS (4)
  - Endometrial hypertrophy [Unknown]
  - Vaginal haemorrhage [Recovered/Resolved]
  - Uterine leiomyoma [Unknown]
  - Abdominal pain [Unknown]
